FAERS Safety Report 18227835 (Version 2)
Quarter: 2020Q3

REPORT INFORMATION
  Report Type: Spontaneous
  Country: JP (occurrence: JP)
  Receive Date: 20200903
  Receipt Date: 20200930
  Transmission Date: 20201103
  Serious: Yes (Death)
  Sender: FDA-Public Use
  Company Number: JP-ELI_LILLY_AND_COMPANY-JP202009000421

PATIENT
  Sex: Male
  Weight: 43 kg

DRUGS (9)
  1. SALAZOSULFAPYRIDINE [Concomitant]
     Active Substance: SULFASALAZINE
     Dosage: 1000 MG, DAILY
     Route: 048
     Dates: start: 20200330
  2. AMLODIPINE [Concomitant]
     Active Substance: AMLODIPINE BESYLATE
     Dosage: 5 MG, DAILY
     Route: 048
  3. CILOSTAZOL. [Concomitant]
     Active Substance: CILOSTAZOL
     Dosage: 200 MG, DAILY
     Route: 048
  4. ALFACALCIDOL [Concomitant]
     Active Substance: ALFACALCIDOL
     Dosage: 0.5 UG, DAILY
     Route: 048
  5. LANSOPRAZOLE. [Concomitant]
     Active Substance: LANSOPRAZOLE
     Dosage: 15 MG, DAILY
     Route: 048
  6. PREDNISOLONE. [Concomitant]
     Active Substance: PREDNISOLONE
     Dosage: 7.5 MG, DAILY
     Route: 048
     Dates: start: 20200803
  7. OLUMIANT [Suspect]
     Active Substance: BARICITINIB
     Indication: RHEUMATOID VASCULITIS
     Dosage: 2 MG, DAILY
     Route: 048
     Dates: start: 20200716
  8. PREDNISOLONE. [Concomitant]
     Active Substance: PREDNISOLONE
     Dosage: 8 MG, DAILY
     Route: 048
     Dates: end: 20200803
  9. BERAPROST NA [Concomitant]
     Active Substance: BERAPROST SODIUM
     Dosage: 120 UG, DAILY
     Route: 048

REACTIONS (1)
  - Death [Fatal]
